FAERS Safety Report 10612689 (Version 1)
Quarter: 2014Q4

REPORT INFORMATION
  Report Type: Spontaneous
  Country: US (occurrence: US)
  Receive Date: 20141127
  Receipt Date: 20141127
  Transmission Date: 20150529
  Serious: Yes (Other)
  Sender: FDA-Public Use
  Company Number: US-SA-2014SA160615

PATIENT

DRUGS (1)
  1. DIABETA [Suspect]
     Active Substance: GLYBURIDE
     Route: 065

REACTIONS (1)
  - Pancreatitis chronic [Unknown]
